FAERS Safety Report 17495491 (Version 1)
Quarter: 2020Q1

REPORT INFORMATION
  Report Type: Spontaneous
  Country: US (occurrence: US)
  Receive Date: 20200303
  Receipt Date: 20200303
  Transmission Date: 20200409
  Serious: Yes (Life-Threatening, Hospitalization, Disabling)
  Sender: FDA-Public Use
  Company Number: None

PATIENT
  Age: 53 Year
  Sex: Male
  Weight: 134 kg

DRUGS (2)
  1. TRULICITY [Concomitant]
     Active Substance: DULAGLUTIDE
     Dates: end: 20200303
  2. TRULICITY [Suspect]
     Active Substance: DULAGLUTIDE

REACTIONS (2)
  - Pancreatitis acute [None]
  - Renal replacement therapy [None]

NARRATIVE: CASE EVENT DATE: 20200301
